FAERS Safety Report 13952420 (Version 1)
Quarter: 2017Q3

REPORT INFORMATION
  Report Type: Spontaneous
  Country: US (occurrence: US)
  Receive Date: 20170911
  Receipt Date: 20170911
  Transmission Date: 20171128
  Serious: No
  Sender: FDA-Public Use
  Company Number: US-TEVA-726949ACC

PATIENT
  Sex: Female
  Weight: 49.94 kg

DRUGS (3)
  1. FENTANYL TRANSDERMAL SYSTEM [Suspect]
     Active Substance: FENTANYL
     Dates: start: 20161027
  2. FENTAPAT-A [Suspect]
     Active Substance: FENTANYL
     Indication: PAIN
     Dosage: 75 MCG 5
     Dates: start: 20161013
  3. FENTANYL TRANSDERMAL SYSTEM [Suspect]
     Active Substance: FENTANYL
     Dates: start: 20161027

REACTIONS (7)
  - Decreased appetite [Unknown]
  - Hypersomnia [Unknown]
  - Product adhesion issue [Unknown]
  - Irritability [Unknown]
  - Nausea [Unknown]
  - Incoherent [Unknown]
  - Wrong technique in product usage process [None]
